FAERS Safety Report 4981466-5 (Version None)
Quarter: 2006Q2

REPORT INFORMATION
  Report Type: 
  Country: None (occurrence: None)
  Receive Date: 20060424
  Receipt Date: 20060413
  Transmission Date: 20061013
  Serious: Yes (Death, Life-Threatening, Hospitalization, Disabling)
  Sender: FDA-Public Use
  Company Number: CZ-MERCK-0604CZE00003

PATIENT
  Age: 16 Year
  Sex: Female

DRUGS (4)
  1. CANCIDAS [Suspect]
     Indication: ASPERGILLOSIS
     Route: 042
  2. AMPHOTERICIN B [Concomitant]
     Indication: ASPERGILLOSIS
     Route: 055
  3. VORICONAZOLE [Concomitant]
     Indication: PROPHYLAXIS
     Route: 065
  4. HEPARIN [Concomitant]
     Indication: VENOUS THROMBOSIS
     Route: 065

REACTIONS (2)
  - ASPERGILLOSIS [None]
  - RESPIRATORY FAILURE [None]
